FAERS Safety Report 24605101 (Version 1)
Quarter: 2024Q4

REPORT INFORMATION
  Report Type: Spontaneous
  Country: US (occurrence: US)
  Receive Date: 20241111
  Receipt Date: 20241111
  Transmission Date: 20250115
  Serious: No
  Sender: PARATEK PHARMACEUTICALS
  Company Number: US-PARATEK PHARMACEUTICALS, INC.-2024PTK00638

PATIENT
  Age: 69 Year
  Sex: Male

DRUGS (10)
  1. NUZYRA [Suspect]
     Active Substance: OMADACYCLINE
     Indication: Mycobacterium abscessus infection
     Dosage: 300 MG, 1X/DAY
     Route: 048
     Dates: start: 20240724, end: 20240725
  2. NUZYRA [Suspect]
     Active Substance: OMADACYCLINE
     Indication: Pneumonia bacterial
     Dosage: 150 MG, 2X/DAY
     Route: 048
     Dates: start: 20240726
  3. IMIPENEM [Suspect]
     Active Substance: IMIPENEM
     Indication: Mycobacterium abscessus infection
     Dosage: 1000 MG, 2X/DAY (MORNING AND EVENING)
     Route: 042
     Dates: start: 20240723
  4. IMIPENEM [Suspect]
     Active Substance: IMIPENEM
     Indication: Pneumonia bacterial
  5. AMIKACIN [Suspect]
     Active Substance: AMIKACIN
     Indication: Mycobacterium abscessus infection
     Dosage: UNK UNK, 3X/WEEK
     Route: 042
     Dates: start: 20240723
  6. AMIKACIN [Suspect]
     Active Substance: AMIKACIN
     Indication: Pneumonia bacterial
  7. LINEZOLID [Concomitant]
     Active Substance: LINEZOLID
     Dosage: UNK UNK, 1X/DAY IN THE EVENING
     Route: 048
     Dates: start: 20240723
  8. CRESTOR [Concomitant]
     Active Substance: ROSUVASTATIN CALCIUM
  9. CELEXA [Concomitant]
     Active Substance: CITALOPRAM HYDROBROMIDE
     Dosage: UNK, 1X/DAY AT NIGHT
  10. VITAMINS [Concomitant]
     Active Substance: VITAMINS

REACTIONS (5)
  - Hot flush [Not Recovered/Not Resolved]
  - Skin warm [Not Recovered/Not Resolved]
  - Vomiting [Not Recovered/Not Resolved]
  - Nausea [Not Recovered/Not Resolved]
  - Off label use [Not Recovered/Not Resolved]

NARRATIVE: CASE EVENT DATE: 20240724
